FAERS Safety Report 4767398-6 (Version None)
Quarter: 2005Q3

REPORT INFORMATION
  Report Type: 
  Country: None (occurrence: None)
  Receive Date: 20050913
  Receipt Date: 20050907
  Transmission Date: 20060218
  Serious: Yes (Hospitalization)
  Sender: FDA-Public Use
  Company Number: GB-MERCK-0509GBR00048

PATIENT
  Age: 66 Year
  Sex: Female
  Weight: 57 kg

DRUGS (3)
  1. ZOCOR [Suspect]
     Route: 048
     Dates: start: 20040901, end: 20041201
  2. ASPIRIN [Concomitant]
     Route: 065
  3. ACETAMINOPHEN [Concomitant]
     Route: 065

REACTIONS (2)
  - POLYMYOSITIS [None]
  - RENAL IMPAIRMENT [None]
